FAERS Safety Report 23557800 (Version 2)
Quarter: 2024Q1

REPORT INFORMATION
  Report Type: Other
  Country: US (occurrence: None)
  Receive Date: 20240223
  Receipt Date: 20240228
  Transmission Date: 20240410
  Serious: Yes (Life-Threatening, Hospitalization)
  Sender: FDA-Public Use
  Company Number: US-ROCHE-3512285

PATIENT
  Age: 59 Year
  Sex: Female

DRUGS (2)
  1. MYCOPHENOLATE MOFETIL [Suspect]
     Active Substance: MYCOPHENOLATE MOFETIL
     Indication: Glomerulonephritis membranoproliferative
     Route: 065
  2. PREDNISONE [Suspect]
     Active Substance: PREDNISONE
     Indication: Glomerulonephritis membranoproliferative
     Route: 065

REACTIONS (7)
  - Drug-induced liver injury [Unknown]
  - Hepatic haemorrhage [Unknown]
  - Bacteraemia [Unknown]
  - Acute hepatic failure [Unknown]
  - Systemic inflammatory response syndrome [Unknown]
  - Anaemia [Unknown]
  - Thrombocytopenia [Unknown]
